FAERS Safety Report 5369081-5 (Version None)
Quarter: 2007Q2

REPORT INFORMATION
  Report Type: 
  Country: None (occurrence: None)
  Receive Date: 20070625
  Receipt Date: 20070205
  Transmission Date: 20071010
  Serious: No
  Sender: FDA-Public Use
  Company Number: US-ASTRAZENECA-2007UW02386

PATIENT
  Age: 67 Year
  Sex: Female
  Weight: 76.2 kg

DRUGS (5)
  1. CRESTOR [Suspect]
     Route: 048
     Dates: start: 20070131
  2. ATENOLOL [Concomitant]
  3. ASPIRIN [Concomitant]
     Dosage: 2
  4. LISINOPRIL [Concomitant]
     Route: 048
  5. SYNTHROID [Concomitant]

REACTIONS (5)
  - ANOREXIA [None]
  - CONSTIPATION [None]
  - MUSCLE SPASMS [None]
  - MYALGIA [None]
  - NAUSEA [None]
